FAERS Safety Report 7512360-3 (Version None)
Quarter: 2011Q2

REPORT INFORMATION
  Report Type: 
  Country: None (occurrence: None)
  Receive Date: 20110531
  Receipt Date: 20110523
  Transmission Date: 20111010
  Serious: Yes (Other)
  Sender: FDA-Public Use
  Company Number: US-ROCHE-760113

PATIENT
  Sex: Female

DRUGS (9)
  1. HERCEPTIN [Suspect]
     Route: 042
     Dates: start: 20101223
  2. HERCEPTIN [Suspect]
     Route: 042
     Dates: start: 20101229
  3. CARBOPLATIN [Suspect]
     Indication: BREAST CANCER
     Dosage: FREQUENCY: EVERY CYCLE
     Route: 042
     Dates: start: 20101216, end: 20101216
  4. TAXOTERE [Suspect]
     Indication: BREAST CANCER
     Dosage: FREQUENCY: EVERY CYCLE
     Route: 041
     Dates: start: 20101216, end: 20101216
  5. CARBOPLATIN [Suspect]
     Route: 042
     Dates: start: 20110112
  6. TAXOL [Suspect]
     Indication: BREAST CANCER
     Route: 065
     Dates: start: 20101201
  7. TAXOL [Suspect]
     Route: 065
     Dates: start: 20110112
  8. HERCEPTIN [Suspect]
     Indication: BREAST CANCER
     Dosage: FREQUENCY: EVERY CYCLE
     Route: 042
     Dates: start: 20101216, end: 20101216
  9. HERCEPTIN [Suspect]
     Route: 042
     Dates: start: 20110112

REACTIONS (14)
  - HEPATIC CIRRHOSIS [None]
  - PLEURAL EFFUSION [None]
  - PRURITUS [None]
  - PORTAL HYPERTENSION [None]
  - PORTAL VEIN THROMBOSIS [None]
  - HEPATIC ENZYME INCREASED [None]
  - HYPERSENSITIVITY [None]
  - BLISTER [None]
  - RASH [None]
  - VAGINAL INFLAMMATION [None]
  - ASCITES [None]
  - STEVENS-JOHNSON SYNDROME [None]
  - STOMATITIS [None]
  - VARICES OESOPHAGEAL [None]
